FAERS Safety Report 17426636 (Version 1)
Quarter: 2020Q1

REPORT INFORMATION
  Report Type: Other
  Country: None (occurrence: CN)
  Receive Date: 20200218
  Receipt Date: 20200218
  Transmission Date: 20200409
  Serious: Yes (Life-Threatening)
  Sender: FDA-Public Use
  Company Number: CN-JIANGSU HENGRUI MEDICINE CO., LTD.-2080569

PATIENT
  Age: 49 Year
  Sex: Male
  Weight: 74 kg

DRUGS (6)
  1. CISATRACURIUM BESYLATE INJECTION USP, 10 MG/5 ML (2 MG/ML) AND 200 MG/ [Suspect]
     Active Substance: CISATRACURIUM BESYLATE
     Indication: ANAESTHESIA
     Route: 041
     Dates: start: 20191212, end: 20191212
  2. SEVOFRANE?SEVOFLURANE FOR INHALATION?MARUISHI PHARMACEUTICAL CO., LTD. [Suspect]
     Active Substance: SEVOFLURANE
     Route: 055
     Dates: start: 20191212, end: 20191212
  3. HYPERTONIC SODIUM CHLORIDE HYDROXYETHYL STARCH 40 INJECTION?SHANGHAI C [Suspect]
     Active Substance: HETASTARCH\SODIUM CHLORIDE
     Route: 041
     Dates: start: 20191212, end: 20191212
  4. PROPOFOL MEDIUM AND LONG CHAIN FAT EMULSION INJECTION?SICHUAN GUORUI P [Suspect]
     Active Substance: PROPOFOL
     Route: 041
     Dates: start: 20191212, end: 20191212
  5. RUIJIE?REMIFENTANIL HYDROCHLORIDE FOR INJECTION?YICHANG HUMANWELL PHAR [Suspect]
     Active Substance: REMIFENTANIL HYDROCHLORIDE
     Route: 041
     Dates: start: 20191212, end: 20191212
  6. DEXMEDETOMIDINE HYDROCHLORIDE INJECTION?JIANGSU HENGRUI MEDICINE CO., [Suspect]
     Active Substance: DEXMEDETOMIDINE HYDROCHLORIDE
     Route: 041
     Dates: start: 20191212, end: 20191212

REACTIONS (1)
  - Ventricular fibrillation [Recovered/Resolved]

NARRATIVE: CASE EVENT DATE: 20191212
